FAERS Safety Report 7047342-1 (Version None)
Quarter: 2010Q4

REPORT INFORMATION
  Report Type: 
  Country: None (occurrence: None)
  Receive Date: 20101015
  Receipt Date: 20101006
  Transmission Date: 20110411
  Serious: Yes (Hospitalization)
  Sender: FDA-Public Use
  Company Number: PHHO2009DE09953

PATIENT
  Sex: Female
  Weight: 52 kg

DRUGS (2)
  1. CERTICAN [Suspect]
     Indication: RENAL TRANSPLANT
     Dosage: 0.5 MG, BID
     Route: 048
     Dates: start: 20090228
  2. SANDIMMUNE [Suspect]
     Dosage: 50 MG, BID
     Route: 048
     Dates: start: 20090228

REACTIONS (10)
  - ASTHENIA [None]
  - BLOOD CREATININE INCREASED [None]
  - CARDIAC FAILURE [None]
  - CONCOMITANT DISEASE PROGRESSION [None]
  - INFECTION [None]
  - MULTI-ORGAN FAILURE [None]
  - NEPHROSCLEROSIS [None]
  - RENAL IMPAIRMENT [None]
  - RESPIRATORY FAILURE [None]
  - UROSEPSIS [None]
